FAERS Safety Report 9696350 (Version 1)
Quarter: 2013Q4

REPORT INFORMATION
  Report Type: Spontaneous
  Country: US (occurrence: US)
  Receive Date: 20131119
  Receipt Date: 20131119
  Transmission Date: 20140711
  Serious: Yes (Other)
  Sender: FDA-Public Use
  Company Number: US-TEVA-394336USA

PATIENT
  Age: 69 Year
  Sex: Female

DRUGS (3)
  1. OXALIPLATIN [Suspect]
     Indication: COLON CANCER
  2. 5-FLUOROURACIL [Concomitant]
     Indication: COLON CANCER
  3. LEUCOVORIN [Concomitant]
     Indication: COLON CANCER

REACTIONS (1)
  - Anaphylactic reaction [Recovered/Resolved]
